FAERS Safety Report 7000975-0 (Version None)
Quarter: 2010Q3

REPORT INFORMATION
  Report Type: 
  Country: None (occurrence: None)
  Receive Date: 20100920
  Receipt Date: 20090928
  Transmission Date: 20110219
  Serious: Yes (Hospitalization)
  Sender: FDA-Public Use
  Company Number: US-ASTRAZENECA-2009SE15830

PATIENT
  Age: 66 Year
  Sex: Female

DRUGS (7)
  1. SEROQUEL [Suspect]
     Dosage: 300 MG IN MORNING + 200MG IN EVENING
     Route: 048
  2. SEROQUEL [Suspect]
     Route: 048
     Dates: start: 20090101
  3. ABILIFY [Suspect]
     Indication: DEMENTIA
     Route: 048
     Dates: start: 20090330
  4. PRILOSEC [Concomitant]
  5. LISINOPRIL [Concomitant]
  6. ATENOLOL [Concomitant]
  7. VALPROIC ACID [Concomitant]

REACTIONS (1)
  - PNEUMONIA [None]
